FAERS Safety Report 6127849-1 (Version None)
Quarter: 2009Q1

REPORT INFORMATION
  Report Type: 
  Country: None (occurrence: None)
  Receive Date: 20090320
  Receipt Date: 20090320
  Transmission Date: 20090719
  Serious: No
  Sender: FDA-Public Use
  Company Number: None

PATIENT
  Age: 45 Year
  Sex: Female
  Weight: 56.6996 kg

DRUGS (6)
  1. LEVAQUIN [Suspect]
     Indication: PNEUMONIA
     Dosage: 500 MG 1 X DAY ORAL
     Route: 048
     Dates: start: 20081208, end: 20081217
  2. PHENAVENT-D [Concomitant]
  3. CARISOPRODOL [Concomitant]
  4. PREDNISONE [Concomitant]
  5. PROVENTIL [Concomitant]
  6. ADVAIR HFA [Concomitant]

REACTIONS (5)
  - ABASIA [None]
  - ABDOMINAL PAIN [None]
  - PSYCHOTIC DISORDER [None]
  - TENDON RUPTURE [None]
  - TENDONITIS [None]
